FAERS Safety Report 19331060 (Version 1)
Quarter: 2021Q2

REPORT INFORMATION
  Report Type: Spontaneous
  Country: US (occurrence: US)
  Receive Date: 20210528
  Receipt Date: 20210528
  Transmission Date: 20210717
  Serious: Yes (Other)
  Sender: FDA-Public Use
  Company Number: NVSC2021US119269

PATIENT
  Age: 11 Year
  Sex: Male
  Weight: 36.7 kg

DRUGS (1)
  1. IBUPROFEN. [Suspect]
     Active Substance: IBUPROFEN
     Indication: PRODUCT USED FOR UNKNOWN INDICATION
     Dosage: 400 DF
     Route: 065

REACTIONS (3)
  - Pulmonary oedema [Unknown]
  - Acidosis [Recovering/Resolving]
  - Altered state of consciousness [Unknown]
